FAERS Safety Report 5481443-4 (Version None)
Quarter: 2007Q4

REPORT INFORMATION
  Report Type: 
  Country: None (occurrence: None)
  Receive Date: 20071010
  Receipt Date: 20071001
  Transmission Date: 20080405
  Serious: Yes (Death)
  Sender: FDA-Public Use
  Company Number: B0490484A

PATIENT

DRUGS (2)
  1. ADEFOVIR DIPIVOXIL KIT [Suspect]
     Indication: HEPATITIS B
     Route: 065
  2. LAMIVUDINE [Suspect]
     Indication: HEPATITIS B
     Route: 048

REACTIONS (2)
  - DRUG RESISTANCE [None]
  - HEPATITIS [None]
